FAERS Safety Report 20912959 (Version 1)
Quarter: 2022Q2

REPORT INFORMATION
  Report Type: Spontaneous
  Country: US (occurrence: US)
  Receive Date: 20220603
  Receipt Date: 20220603
  Transmission Date: 20220720
  Serious: No
  Sender: FDA-Public Use
  Company Number: US-TAKEDA-2022TUS035893

PATIENT
  Age: 21 Year
  Sex: Female
  Weight: 64 kg

DRUGS (1)
  1. ADDERALL XR [Suspect]
     Active Substance: AMPHETAMINE ASPARTATE\AMPHETAMINE SULFATE\DEXTROAMPHETAMINE SACCHARATE\DEXTROAMPHETAMINE SULFATE
     Indication: Attention deficit hyperactivity disorder
     Dosage: 30 MILLIGRAM
     Route: 065

REACTIONS (5)
  - Asthenia [Unknown]
  - Disturbance in attention [Unknown]
  - Drug ineffective [Unknown]
  - Product availability issue [Unknown]
  - Therapy interrupted [Unknown]
